FAERS Safety Report 16114772 (Version 2)
Quarter: 2019Q2

REPORT INFORMATION
  Report Type: Spontaneous
  Country: US (occurrence: US)
  Receive Date: 20190325
  Receipt Date: 20190513
  Transmission Date: 20190711
  Serious: Yes (Hospitalization)
  Sender: FDA-Public Use
  Company Number: US-NOVOPROD-652960

PATIENT
  Age: 58 Year
  Sex: Female
  Weight: 86.17 kg

DRUGS (1)
  1. OZEMPIC [Suspect]
     Active Substance: SEMAGLUTIDE
     Indication: TYPE 2 DIABETES MELLITUS
     Dosage: 0.25 MG, QD
     Route: 058
     Dates: start: 20190311

REACTIONS (4)
  - Chest discomfort [Unknown]
  - Chest pain [Not Recovered/Not Resolved]
  - Off label use [Unknown]
  - Vomiting [Unknown]

NARRATIVE: CASE EVENT DATE: 20190311
